FAERS Safety Report 5301268-X (Version None)
Quarter: 2007Q2

REPORT INFORMATION
  Report Type: 
  Country: None (occurrence: None)
  Receive Date: 20070418
  Receipt Date: 20070410
  Transmission Date: 20071010
  Serious: Yes (Other)
  Sender: FDA-Public Use
  Company Number: GB-PFIZER INC-2007029294

PATIENT
  Age: 3 Year
  Sex: Male

DRUGS (1)
  1. EPANUTIN SUSPENSION [Suspect]
     Indication: EPILEPSY

REACTIONS (1)
  - EPILEPSY [None]
